FAERS Safety Report 5122922-9 (Version None)
Quarter: 2006Q4

REPORT INFORMATION
  Report Type: 
  Country: None (occurrence: None)
  Receive Date: 20061005
  Receipt Date: 20060921
  Transmission Date: 20070319
  Serious: Yes (Other)
  Sender: FDA-Public Use
  Company Number: 14861

PATIENT
  Age: 62 Year
  Sex: Male

DRUGS (6)
  1. CARBOPLATIN [Suspect]
     Indication: NON-SMALL CELL LUNG CANCER
     Dosage: 1123 MG/M2 TOTAL IV
     Route: 042
  2. CISPLATIN [Suspect]
     Indication: NON-SMALL CELL LUNG CANCER
     Dosage: 240 MG/M2 TOTAL IV
     Route: 042
  3. PACLITAXEL [Concomitant]
  4. DOCETAXEL [Concomitant]
  5. GEMCITABINE [Concomitant]
  6. ETOPOSIDE [Suspect]
     Indication: NON-SMALL CELL LUNG CANCER
     Dosage: 720 MG/M2 TOTAL IV
     Route: 042

REACTIONS (5)
  - CHRONIC MYELOMONOCYTIC LEUKAEMIA [None]
  - MALIGNANT NEOPLASM PROGRESSION [None]
  - METASTASES TO LUNG [None]
  - NON-SMALL CELL LUNG CANCER METASTATIC [None]
  - THERAPEUTIC RESPONSE DECREASED [None]
